FAERS Safety Report 9106807 (Version 2)
Quarter: 2013Q2

REPORT INFORMATION
  Report Type: Spontaneous
  Country: FR (occurrence: FR)
  Receive Date: 20130221
  Receipt Date: 20130418
  Transmission Date: 20140414
  Serious: Yes (Hospitalization, Other)
  Sender: FDA-Public Use
  Company Number: FR-ASTRAZENECA-2013SE10747

PATIENT
  Age: 65 Year
  Sex: Male

DRUGS (1)
  1. CAPRELSA [Suspect]
     Indication: THYROID CANCER
     Route: 048

REACTIONS (2)
  - Peripheral ischaemia [Recovered/Resolved with Sequelae]
  - Peripheral embolism [Recovered/Resolved with Sequelae]
